APPROVED DRUG PRODUCT: ATROPINE SULFATE
Active Ingredient: ATROPINE SULFATE
Strength: 1%
Dosage Form/Route: SOLUTION/DROPS;OPHTHALMIC
Application: N206289 | Product #001 | TE Code: AT1
Applicant: RISING PHARMA HOLDINGS INC
Approved: Jul 18, 2014 | RLD: Yes | RS: No | Type: RX